FAERS Safety Report 6706151-0 (Version None)
Quarter: 2010Q2

REPORT INFORMATION
  Report Type: 
  Country: None (occurrence: None)
  Receive Date: 20100503
  Receipt Date: 20100422
  Transmission Date: 20101027
  Serious: Yes (Other)
  Sender: FDA-Public Use
  Company Number: US-SANOFI-AVENTIS-2010SA023788

PATIENT
  Age: 71 Year
  Sex: Female

DRUGS (3)
  1. AMBIEN CR [Suspect]
     Indication: SLEEP DISORDER
     Dosage: HALF OF A 12.5 MG TABLET AT BEDTIME
     Route: 048
     Dates: start: 20080101, end: 20100401
  2. AMBIEN CR [Suspect]
     Route: 048
     Dates: start: 20080101, end: 20080101
  3. VITAMINS [Concomitant]

REACTIONS (14)
  - BACTERIAL INFECTION [None]
  - BRONCHITIS [None]
  - CHAPPED LIPS [None]
  - COUGH [None]
  - DRY MOUTH [None]
  - GASTROOESOPHAGEAL REFLUX DISEASE [None]
  - OROPHARYNGEAL BLISTERING [None]
  - OROPHARYNGEAL PAIN [None]
  - PHARYNGEAL ERYTHEMA [None]
  - POISONING [None]
  - SLEEP APNOEA SYNDROME [None]
  - SOMNOLENCE [None]
  - STOMATITIS [None]
  - WRONG TECHNIQUE IN DRUG USAGE PROCESS [None]
